FAERS Safety Report 5852866-6 (Version None)
Quarter: 2008Q3

REPORT INFORMATION
  Report Type: 
  Country: None (occurrence: None)
  Receive Date: 20080815
  Receipt Date: 20071115
  Transmission Date: 20090109
  Serious: Yes (Other)
  Sender: FDA-Public Use
  Company Number: 531906

PATIENT
  Sex: Female

DRUGS (2)
  1. CELLCEPT [Suspect]
     Indication: POLYMYOSITIS
     Dosage: 3000 MG DAILY
     Dates: start: 20051101, end: 20071101
  2. CELLCEPT [Suspect]
     Indication: POLYMYOSITIS
     Dosage: 1500 MG 2 PER DAY

REACTIONS (2)
  - DYSPEPSIA [None]
  - PULMONARY EMBOLISM [None]
